FAERS Safety Report 25031224 (Version 1)
Quarter: 2025Q1

REPORT INFORMATION
  Report Type: Spontaneous
  Country: US (occurrence: None)
  Receive Date: 20250228
  Receipt Date: 20250228
  Transmission Date: 20250409
  Serious: No
  Sender: FDA-CTU
  Company Number: None

PATIENT
  Age: 55 Year
  Sex: Female

DRUGS (2)
  1. HADLIMA [Suspect]
     Active Substance: ADALIMUMAB-BWWD
     Route: 058
     Dates: start: 20240916, end: 20250219
  2. HADLIMA [Concomitant]
     Active Substance: ADALIMUMAB-BWWD
     Dates: start: 20240916, end: 20250219

REACTIONS (4)
  - Pain of skin [None]
  - Skin fissures [None]
  - Skin exfoliation [None]
  - Lip exfoliation [None]

NARRATIVE: CASE EVENT DATE: 20250228
